FAERS Safety Report 5518305-X (Version None)
Quarter: 2007Q4

REPORT INFORMATION
  Report Type: 
  Country: None (occurrence: None)
  Receive Date: 20071113
  Receipt Date: 20071031
  Transmission Date: 20080405
  Serious: Yes (Other)
  Sender: FDA-Public Use
  Company Number: GXKR2007GB09421

PATIENT
  Age: 64 Year
  Sex: Male

DRUGS (11)
  1. AMOXICILLIN TRIHYDRATE [Suspect]
     Indication: WOUND INFECTION
     Dosage: ORAL
     Route: 048
     Dates: start: 20070726, end: 20070802
  2. METRONIDAZOLE [Suspect]
     Indication: WOUND INFECTION
     Dosage: 400 MG, TID, ORAL
     Route: 048
     Dates: start: 20070726, end: 20070802
  3. CLAVULANATE POTASSIUM [Suspect]
     Indication: WOUND INFECTION
     Dosage: ORAL
     Route: 048
     Dates: start: 20070726, end: 20070802
  4. ALLOPURINOL [Concomitant]
  5. CORACTEN (NIFEDIPINE) [Concomitant]
  6. DIGOXIN [Concomitant]
  7. GAVISCON [Concomitant]
  8. IRBESARTAN [Concomitant]
  9. PARACETAMOL [Concomitant]
  10. SIMVASTATIN [Concomitant]
  11. WARFARIN SODIUM [Concomitant]

REACTIONS (1)
  - HEPATITIS [None]
